FAERS Safety Report 8572823-9 (Version None)
Quarter: 2012Q3

REPORT INFORMATION
  Report Type: 
  Country: None (occurrence: None)
  Receive Date: 20120806
  Receipt Date: 20120723
  Transmission Date: 20120928
  Serious: Yes (Death, Other)
  Sender: FDA-Public Use
  Company Number: US-ROCHE-487384

PATIENT

DRUGS (3)
  1. ROFERON-A [Suspect]
     Indication: METASTATIC RENAL CELL CARCINOMA
     Dosage: GIVEN ON NONCONSECUTIVE DAYS, 3 MU AT THREE TIMES A WEEK DURING THE FIRST WEEK.
     Route: 058
  2. ROFERON-A [Suspect]
     Dosage: GIVEN 6 MU THREE TIMES A WEEK DURING SECOND WEEK.
     Route: 058
  3. ROFERON-A [Suspect]
     Dosage: GIVEN 9 MU THREE TIMES A WEEK THEREAFTER.
     Route: 058

REACTIONS (41)
  - STOMATITIS [None]
  - LYMPHOPENIA [None]
  - ALANINE AMINOTRANSFERASE INCREASED [None]
  - RESPIRATORY FAILURE [None]
  - EJECTION FRACTION DECREASED [None]
  - LEUKOPENIA [None]
  - NEUTROPENIA [None]
  - ANAEMIA [None]
  - NEOPLASM MALIGNANT [None]
  - MYALGIA [None]
  - INFLUENZA LIKE ILLNESS [None]
  - BLOOD CREATININE INCREASED [None]
  - BLOOD ALKALINE PHOSPHATASE INCREASED [None]
  - AMYLASE INCREASED [None]
  - DECREASED APPETITE [None]
  - HYPOTHYROIDISM [None]
  - BLOOD CREATINE PHOSPHOKINASE INCREASED [None]
  - CEREBRAL HAEMORRHAGE [None]
  - FATIGUE [None]
  - BLOOD URIC ACID INCREASED [None]
  - HYPOPHOSPHATAEMIA [None]
  - DYSPNOEA [None]
  - THROMBOCYTOPENIA [None]
  - MYOCARDIAL INFARCTION [None]
  - CARDIAC DISORDER [None]
  - VOMITING [None]
  - ASTHENIA [None]
  - DYSPEPSIA [None]
  - HYPERTENSION [None]
  - MUCOSAL INFLAMMATION [None]
  - RASH [None]
  - ARTHRALGIA [None]
  - PYREXIA [None]
  - NAUSEA [None]
  - DRY MOUTH [None]
  - LIPASE INCREASED [None]
  - DIARRHOEA [None]
  - PALMAR-PLANTAR ERYTHRODYSAESTHESIA SYNDROME [None]
  - WEIGHT DECREASED [None]
  - INTRACRANIAL TUMOUR HAEMORRHAGE [None]
  - ASPARTATE AMINOTRANSFERASE INCREASED [None]
